FAERS Safety Report 12108560 (Version 1)
Quarter: 2016Q1

REPORT INFORMATION
  Report Type: Spontaneous
  Country: US (occurrence: None)
  Receive Date: 20160222
  Receipt Date: 20160222
  Transmission Date: 20160526
  Serious: Yes (Death)
  Sender: FDA-Public Use
  Company Number: None

PATIENT
  Sex: Male

DRUGS (9)
  1. FLUCONAZOLE. [Concomitant]
     Active Substance: FLUCONAZOLE
  2. KETOCONAZOLE. [Concomitant]
     Active Substance: KETOCONAZOLE
  3. LEUCORIN [Concomitant]
  4. SULFADIAZINE. [Concomitant]
     Active Substance: SULFADIAZINE
  5. AZITHROMYCIN ANHYDROUS. [Concomitant]
     Active Substance: AZITHROMYCIN ANHYDROUS
  6. TRUVADA [Concomitant]
     Active Substance: EMTRICITABINE\TENOFOVIR DISOPROXIL FUMARATE
  7. AMOXICILLIN. [Concomitant]
     Active Substance: AMOXICILLIN
  8. LEVETIRACETAM. [Concomitant]
     Active Substance: LEVETIRACETAM
  9. ISENTRESS [Suspect]
     Active Substance: RALTEGRAVIR POTASSIUM
     Route: 048

REACTIONS (1)
  - Death [None]

NARRATIVE: CASE EVENT DATE: 2016
